FAERS Safety Report 6300207-2 (Version None)
Quarter: 2009Q3

REPORT INFORMATION
  Report Type: 
  Country: None (occurrence: None)
  Receive Date: 20090806
  Receipt Date: 20090731
  Transmission Date: 20100115
  Serious: Yes (Hospitalization)
  Sender: FDA-Public Use
  Company Number: US-GILEAD-2009-0023245

PATIENT
  Sex: Female

DRUGS (17)
  1. LETAIRIS [Suspect]
     Indication: PULMONARY ARTERIAL HYPERTENSION
     Route: 048
     Dates: start: 20090227, end: 20090701
  2. REVATIO [Concomitant]
     Indication: PULMONARY ARTERIAL HYPERTENSION
     Dates: start: 20080601
  3. LASIX [Concomitant]
  4. ADVAIR HFA [Concomitant]
  5. NORVASC [Concomitant]
  6. FLUCON ACET SOL [Concomitant]
  7. SALINE NASAL SPARAY [Concomitant]
  8. MORPHINE SULFATE [Concomitant]
     Indication: PAIN
  9. DULCOLAX [Concomitant]
     Indication: CONSTIPATION
  10. MIRALAX [Concomitant]
  11. VICKS INH [Concomitant]
  12. TYLENOL (CAPLET) [Concomitant]
  13. PROMETHAZINE [Concomitant]
  14. DIAZEPAM [Concomitant]
  15. MUCINEX [Concomitant]
  16. TUMS [Concomitant]
  17. VIAGRA [Concomitant]

REACTIONS (7)
  - DYSPHAGIA [None]
  - DYSPNOEA [None]
  - EPISTAXIS [None]
  - EYE IRRITATION [None]
  - GENERALISED OEDEMA [None]
  - PNEUMONIA [None]
  - WEIGHT INCREASED [None]
